FAERS Safety Report 19209331 (Version 1)
Quarter: 2021Q2

REPORT INFORMATION
  Report Type: Spontaneous
  Country: US (occurrence: US)
  Receive Date: 20210503
  Receipt Date: 20210503
  Transmission Date: 20210717
  Serious: Yes (Other)
  Sender: FDA-Public Use
  Company Number: US-ELI_LILLY_AND_COMPANY-US202104010644

PATIENT
  Sex: Female

DRUGS (3)
  1. HUMALOG [Suspect]
     Active Substance: INSULIN LISPRO
     Dosage: 50 U, AFTER EACH MEAL
     Route: 065
     Dates: start: 202012
  2. HUMALOG [Suspect]
     Active Substance: INSULIN LISPRO
     Indication: PRODUCT USED FOR UNKNOWN INDICATION
     Dosage: 50 U, BEFORE BEDTIME
     Route: 065
     Dates: start: 201912
  3. LANTUS [Suspect]
     Active Substance: INSULIN GLARGINE
     Indication: PRODUCT USED FOR UNKNOWN INDICATION
     Dosage: 50 U, UNKNOWN
     Route: 065

REACTIONS (6)
  - Product dispensing error [Unknown]
  - Ascites [Unknown]
  - Insomnia [Unknown]
  - Brain oedema [Not Recovered/Not Resolved]
  - Somnolence [Recovering/Resolving]
  - Dizziness [Not Recovered/Not Resolved]
